FAERS Safety Report 24603190 (Version 1)
Quarter: 2024Q4

REPORT INFORMATION
  Report Type: Spontaneous
  Country: US (occurrence: None)
  Receive Date: 20241108
  Receipt Date: 20241108
  Transmission Date: 20250115
  Serious: Yes (Death)
  Sender: Public
  Company Number: None

PATIENT
  Age: 56 Year
  Sex: Female

DRUGS (2)
  1. CAPECITABINE [Suspect]
     Active Substance: CAPECITABINE
     Indication: Breast cancer
     Dosage: 1800 MG TWICE A DAY ORAL
     Route: 048
     Dates: start: 20231006, end: 20241108
  2. CAPECITABINE [Suspect]
     Active Substance: CAPECITABINE
     Indication: Bone cancer metastatic

REACTIONS (1)
  - Death [None]

NARRATIVE: CASE EVENT DATE: 20241108
